FAERS Safety Report 8965655 (Version 1)
Quarter: 2012Q4

REPORT INFORMATION
  Report Type: Spontaneous
  Country: CA (occurrence: None)
  Receive Date: 20121206
  Receipt Date: 20121206
  Transmission Date: 20130627
  Serious: Yes (Hospitalization)
  Sender: FDA-Public Use
  Company Number: CA-007753

PATIENT
  Age: 58 Year
  Sex: Male
  Weight: 53.07 kg

DRUGS (1)
  1. DEGARELIX [Suspect]
     Indication: PROSTATE CANCER
     Dates: start: 20120116

REACTIONS (2)
  - Device occlusion [None]
  - Urosepsis [None]
